FAERS Safety Report 5913503-5 (Version None)
Quarter: 2008Q4

REPORT INFORMATION
  Report Type: 
  Country: None (occurrence: None)
  Receive Date: 20081009
  Receipt Date: 20080930
  Transmission Date: 20090506
  Serious: Yes (Other)
  Sender: FDA-Public Use
  Company Number: GB-AMGEN-US301285

PATIENT
  Sex: Male

DRUGS (3)
  1. ENBREL [Suspect]
     Indication: DRUG USE FOR UNKNOWN INDICATION
     Route: 065
  2. SULFASALAZINE [Concomitant]
     Dosage: UNKNOWN
     Route: 065
  3. PREDNISOLONE [Concomitant]
     Dosage: 10 MG (FREQUENCY UNKNOWN)
     Route: 065

REACTIONS (5)
  - CONDITION AGGRAVATED [None]
  - MUSCLE ATROPHY [None]
  - NEUROLOGICAL SYMPTOM [None]
  - RHEUMATOID ARTHRITIS [None]
  - SENSORY LOSS [None]
